FAERS Safety Report 10975452 (Version 1)
Quarter: 2015Q2

REPORT INFORMATION
  Report Type: Spontaneous
  Country: US (occurrence: US)
  Receive Date: 20150401
  Receipt Date: 20150401
  Transmission Date: 20150821
  Serious: Yes (Hospitalization, Other)
  Sender: FDA-Public Use
  Company Number: US-ELI_LILLY_AND_COMPANY-US201503007175

PATIENT
  Sex: Female

DRUGS (1)
  1. GLUCAGON. [Suspect]
     Active Substance: GLUCAGON
     Indication: TYPE 1 DIABETES MELLITUS
     Dosage: UNK, PRN
     Route: 065
     Dates: start: 1976

REACTIONS (9)
  - Pneumothorax [Unknown]
  - Staphylococcal infection [Unknown]
  - Myocardial infarction [Unknown]
  - Transient ischaemic attack [Unknown]
  - Pneumonia [Unknown]
  - Cerebrovascular accident [Unknown]
  - Weight decreased [Unknown]
  - Pseudomonas infection [Unknown]
  - Infection [Unknown]

NARRATIVE: CASE EVENT DATE: 2000
